FAERS Safety Report 9079289 (Version 1)
Quarter: 2013Q1

REPORT INFORMATION
  Report Type: Report from Study
  Country: US (occurrence: US)
  Receive Date: 20130130
  Receipt Date: 20130130
  Transmission Date: 20140127
  Serious: No
  Sender: FDA-Public Use
  Company Number: US-ABBOTT-12P-163-0958543-00

PATIENT
  Sex: 0

DRUGS (2)
  1. HUMIRA 40 MG/0.8 ML PEN [Suspect]
     Indication: CROHN^S DISEASE
     Dates: start: 201112, end: 20120629
  2. HUMIRA 40 MG/0.8 ML PEN [Suspect]
     Dates: start: 20120712

REACTIONS (1)
  - Urinary tract infection [Unknown]
